FAERS Safety Report 23692504 (Version 1)
Quarter: 2024Q2

REPORT INFORMATION
  Report Type: Report from Study
  Country: US (occurrence: US)
  Receive Date: 20240401
  Receipt Date: 20240401
  Transmission Date: 20240715
  Serious: Yes (Other)
  Sender: FDA-Public Use
  Company Number: US-SA-2024SA097580

PATIENT

DRUGS (6)
  1. OXALIPLATIN [Suspect]
     Active Substance: OXALIPLATIN
     Indication: Nongerminomatous germ cell tumour of the CNS
     Dosage: 100 MG/M2 OVER 2 HOURS
     Route: 042
  2. PACLITAXEL [Suspect]
     Active Substance: PACLITAXEL
     Indication: Nongerminomatous germ cell tumour of the CNS
     Dosage: 170 MG/M2 OVER 3 HOURS
     Route: 042
  3. GEMCITABINE [Suspect]
     Active Substance: GEMCITABINE
     Indication: Nongerminomatous germ cell tumour of the CNS
     Dosage: 800 MG/M2 OVER 1 HOUR
     Route: 042
  4. DEXAMETHASONE [Concomitant]
     Active Substance: DEXAMETHASONE
     Dosage: PRESCRIBED 30 MIN PRIOR TO PACLITAXEL INFUSION
  5. RANITIDINE [Concomitant]
     Active Substance: RANITIDINE
     Dosage: PRESCRIBED 30 MIN PRIOR TO PACLITAXEL INFUSION
  6. DIPHENHYDRAMINE [Concomitant]
     Active Substance: DIPHENHYDRAMINE
     Dosage: PRESCRIBED 30 MIN PRIOR TO PACLITAXEL INFUSION

REACTIONS (1)
  - Hyperglycaemia [Unknown]
